FAERS Safety Report 19497363 (Version 2)
Quarter: 2021Q3

REPORT INFORMATION
  Report Type: Spontaneous
  Country: US (occurrence: US)
  Receive Date: 20210706
  Receipt Date: 20210709
  Transmission Date: 20211014
  Serious: No
  Sender: FDA-Public Use
  Company Number: US-SA-2021SA217921

PATIENT
  Sex: Female

DRUGS (1)
  1. DUPIXENT [Suspect]
     Active Substance: DUPILUMAB
     Indication: ECZEMA
     Dosage: 300 MG/ML, QOW
     Route: 058

REACTIONS (4)
  - Injection site swelling [Unknown]
  - Acne [Unknown]
  - Product residue present [Unknown]
  - Incorrect dose administered [Unknown]
